FAERS Safety Report 23896458 (Version 2)
Quarter: 2024Q4

REPORT INFORMATION
  Report Type: Report from Study
  Country: CA (occurrence: CA)
  Receive Date: 20240524
  Receipt Date: 20241004
  Transmission Date: 20250115
  Serious: Yes (Hospitalization)
  Sender: AKCEA THERAPEUTICS
  Company Number: CA-AKCEA THERAPEUTICS, INC.-2024IS004668

PATIENT

DRUGS (2)
  1. TEGSEDI [Suspect]
     Active Substance: INOTERSEN SODIUM
     Indication: Hereditary neuropathic amyloidosis
     Dosage: 284 MILLIGRAM, BIWEEKLY
     Route: 058
     Dates: start: 20200807
  2. ASPIRIN [Concomitant]
     Active Substance: ASPIRIN
     Indication: Product used for unknown indication
     Dosage: 81 MILLIGRAM, QD
     Route: 048
     Dates: start: 202101

REACTIONS (8)
  - Confusional state [Unknown]
  - Dysarthria [Unknown]
  - Disorientation [Unknown]
  - Myocardial necrosis marker increased [Unknown]
  - Movement disorder [Unknown]
  - Restlessness [Unknown]
  - Electrolyte imbalance [Unknown]
  - Product dose omission issue [Unknown]
